FAERS Safety Report 6290568-5 (Version None)
Quarter: 2009Q3

REPORT INFORMATION
  Report Type: 
  Country: None (occurrence: None)
  Receive Date: 20090728
  Receipt Date: 20090728
  Transmission Date: 20100115
  Serious: No
  Sender: FDA-Public Use
  Company Number: None

PATIENT
  Age: 30 Year
  Sex: Female

DRUGS (1)
  1. DOMPERIDONE CAPSULES 20 MG COMPOUNDED [Suspect]
     Indication: IMPAIRED GASTRIC EMPTYING
     Dosage: 20 MG FOUR TIMES DAILY PO
     Route: 048
     Dates: start: 20090629, end: 20090727

REACTIONS (1)
  - CONVULSION [None]
